FAERS Safety Report 5690768-9 (Version None)
Quarter: 2008Q2

REPORT INFORMATION
  Report Type: 
  Country: None (occurrence: None)
  Receive Date: 20080401
  Receipt Date: 20080324
  Transmission Date: 20081010
  Serious: Yes (Other)
  Sender: FDA-Public Use
  Company Number: A0704352A

PATIENT
  Age: 42 Year
  Sex: Female
  Weight: 68.2 kg

DRUGS (3)
  1. LAMICTAL [Suspect]
     Indication: BIPOLAR DISORDER
     Dosage: 200MG UNKNOWN
     Route: 048
  2. PROZAC [Concomitant]
     Dosage: 20MG PER DAY
     Route: 048
     Dates: end: 20080301
  3. WELLBUTRIN XL [Concomitant]
     Route: 048

REACTIONS (1)
  - ASTHMA [None]
